FAERS Safety Report 13417506 (Version 2)
Quarter: 2017Q2

REPORT INFORMATION
  Report Type: Report from Study
  Country: None (occurrence: VE)
  Receive Date: 20170407
  Receipt Date: 20170410
  Transmission Date: 20170830
  Serious: Yes (Death)
  Sender: FDA-Public Use
  Company Number: VE-ABBVIE-17P-178-1936936-00

PATIENT
  Age: 51 Year
  Sex: Female

DRUGS (1)
  1. ZEMPLAR [Suspect]
     Active Substance: PARICALCITOL
     Indication: NEPHROPATHY
     Route: 050
     Dates: start: 20100501, end: 20170103

REACTIONS (2)
  - Respiratory tract infection [Fatal]
  - Device related infection [Fatal]

NARRATIVE: CASE EVENT DATE: 20170103
